FAERS Safety Report 4708786-3 (Version None)
Quarter: 2005Q3

REPORT INFORMATION
  Report Type: 
  Country: None (occurrence: None)
  Receive Date: 20050707
  Receipt Date: 20050426
  Transmission Date: 20060218
  Serious: Yes (Life-Threatening, Hospitalization, Disabling)
  Sender: FDA-Public Use
  Company Number: GBWYE625727APR05

PATIENT
  Sex: Male

DRUGS (6)
  1. ENBREL [Suspect]
     Indication: RHEUMATOID ARTHRITIS
     Dosage: UNKNOWN
     Route: 058
     Dates: start: 20041116, end: 20050407
  2. PREDNISOLONE [Concomitant]
     Dates: start: 20010208
  3. METHOTREXATE [Concomitant]
  4. HYDROXYCHLOROQUINE SULFATE [Concomitant]
     Dates: start: 20020822
  5. FOLIC ACID [Concomitant]
  6. TRAMADOL [Concomitant]

REACTIONS (1)
  - RECTOSIGMOID CANCER [None]
